FAERS Safety Report 10725897 (Version 3)
Quarter: 2015Q1

REPORT INFORMATION
  Report Type: Spontaneous
  Country: FR (occurrence: FR)
  Receive Date: 20150121
  Receipt Date: 20150307
  Transmission Date: 20150721
  Serious: Yes (Hospitalization, Other)
  Sender: FDA-Public Use
  Company Number: FR-AMGEN-FRASP2015004930

PATIENT
  Age: 69 Year
  Sex: Female

DRUGS (1)
  1. ENBREL [Suspect]
     Active Substance: ETANERCEPT
     Indication: PSORIASIS
     Dosage: 1 DF, WEEKLY
     Route: 042
     Dates: start: 201409, end: 20141203

REACTIONS (5)
  - Rash generalised [Recovered/Resolved]
  - Human herpesvirus 6 infection [Unknown]
  - Incorrect route of drug administration [Unknown]
  - Viral infection [Unknown]
  - Human herpesvirus 6 infection [Recovered/Resolved]

NARRATIVE: CASE EVENT DATE: 2014
